FAERS Safety Report 21011250 (Version 1)
Quarter: 2022Q2

REPORT INFORMATION
  Report Type: Spontaneous
  Country: ES (occurrence: ES)
  Receive Date: 20220627
  Receipt Date: 20220627
  Transmission Date: 20220720
  Serious: Yes (Hospitalization, Other)
  Sender: FDA-Public Use
  Company Number: None

PATIENT
  Age: 72 Year
  Sex: Female
  Weight: 71 kg

DRUGS (9)
  1. JARDIANCE [Suspect]
     Active Substance: EMPAGLIFLOZIN
     Indication: Diabetes mellitus
     Dosage: 1 TABLET EVERY DAY
     Dates: start: 20161114, end: 20200227
  2. NOVORAPID FLEXPEN 100 U/ML SOLUCION INYECTABLE EN UNA PLUMA [Concomitant]
     Indication: Diabetes mellitus
     Dosage: 100 U/ML
     Dates: start: 20100422
  3. ASPIRIN [Concomitant]
     Active Substance: ASPIRIN
     Indication: Myocardial ischaemia
     Dosage: 1 TABLET EVERY DAY
     Dates: start: 20131221
  4. EXFORGE 10 mg/160 mg COMPRIMIDOS RECUBIERTOS CON PELICULA, 28 comprimi [Concomitant]
     Indication: Hypertension
     Dosage: 1 TABLET EVERY DAY
     Dates: start: 20140611
  5. Bisoprolol 5 mg 30 comprimidos [Concomitant]
     Indication: Hypertension
     Dosage: 1 TABLET EVERY DAY
  6. Omeprazol 20 mg 28 c?psulas [Concomitant]
     Indication: Prophylaxis
     Dosage: 1 CAPSULE EVERY DAY
  7. ATORVASTATIN [Concomitant]
     Active Substance: ATORVASTATIN
     Indication: Hypercholesterolaemia
     Dosage: 1 TABLET EVERY DAY
     Dates: start: 20100913
  8. ABASAGLAR 100 UNIDADES/ML KWIKPEN SOLUCION INYECTABLE EN PLUM [Concomitant]
     Indication: Diabetes mellitus
     Dosage: 34 IU AT BREAKFAST.
  9. UNIKET 20 mg COMPRIMIDOS, 40 comprimidos [Concomitant]
     Indication: Myocardial ischaemia
     Dosage: 1 TABLET EVERY 8 HOURS

REACTIONS (1)
  - Diabetic ketoacidosis [Recovered/Resolved]

NARRATIVE: CASE EVENT DATE: 20200225
